FAERS Safety Report 13746948 (Version 2)
Quarter: 2017Q3

REPORT INFORMATION
  Report Type: Spontaneous
  Country: DE (occurrence: DE)
  Receive Date: 20170712
  Receipt Date: 20170727
  Transmission Date: 20171127
  Serious: Yes (Other)
  Sender: FDA-Public Use
  Company Number: PHHY2017DE098717

PATIENT
  Sex: Female

DRUGS (5)
  1. SODIUM HYDROGEN CARBONATE [Suspect]
     Active Substance: SODIUM BICARBONATE
     Indication: FOETAL EXPOSURE DURING PREGNANCY
     Route: 064
  2. BISOPROLOL [Suspect]
     Active Substance: BISOPROLOL
     Indication: FOETAL EXPOSURE DURING PREGNANCY
     Route: 064
  3. XIPAMIDE [Suspect]
     Active Substance: XIPAMIDE
     Indication: FOETAL EXPOSURE DURING PREGNANCY
     Route: 064
  4. COLESTILAN CHLORIDE [Suspect]
     Active Substance: COLESTILAN CHLORIDE
     Indication: FOETAL EXPOSURE DURING PREGNANCY
     Route: 064
  5. CANDESARTAN CILEXETIL. [Suspect]
     Active Substance: CANDESARTAN CILEXETIL
     Indication: FOETAL EXPOSURE DURING PREGNANCY
     Route: 064

REACTIONS (8)
  - Low birth weight baby [Unknown]
  - Hypotension [Recovering/Resolving]
  - Premature baby [Unknown]
  - Acute kidney injury [Recovering/Resolving]
  - Anuria [Recovering/Resolving]
  - Oligohydramnios [Unknown]
  - Foetal exposure during pregnancy [Unknown]
  - Dyspnoea [None]
